FAERS Safety Report 4861864-0 (Version None)
Quarter: 2005Q4

REPORT INFORMATION
  Report Type: 
  Country: None (occurrence: None)
  Receive Date: 20051130
  Receipt Date: 20041105
  Transmission Date: 20060501
  Serious: Yes (Hospitalization)
  Sender: FDA-Public Use
  Company Number: 2004089772

PATIENT
  Age: 27 Year
  Sex: Female

DRUGS (23)
  1. LINEZOLID TABLET (LINEZOLID) [Suspect]
     Indication: ILL-DEFINED DISORDER
     Dosage: 1200 MG (600 MG, 1 IN 12 HR), ORAL
     Route: 048
     Dates: end: 20041103
  2. TACROLIMUS (TACROLIMUS) [Suspect]
     Indication: ILL-DEFINED DISORDER
  3. OXYCODONE (OXYCODONE) [Concomitant]
  4. CYCLOSPORINE [Concomitant]
  5. AMLODIPINE [Concomitant]
  6. ASCORBIC ACID [Concomitant]
  7. CALCIUM CARBONATE (CALCIUM CARBONATE) [Concomitant]
  8. DOCUSATE (DOCUSATE) [Concomitant]
  9. FAMOTIDINE [Concomitant]
  10. LABETALOL HCL [Concomitant]
  11. PANTOPRAZOLE SODIUM [Concomitant]
  12. PREDNISONE [Concomitant]
  13. SENNA (SENNA) [Concomitant]
  14. BACTRIM [Concomitant]
  15. TOBRAMYCIN [Concomitant]
  16. ERGOCALCIFEROL (ERGOCALCIFEROL) [Concomitant]
  17. FLUCONAZOLE [Concomitant]
  18. ZINC (ZINC) [Concomitant]
  19. INSULIN [Concomitant]
  20. PANCRELIPASE (PANCRELIPASE) [Concomitant]
  21. BUDESONIDE [Concomitant]
  22. DARBEPOETIN ALFA (DARBEPOETIN ALFA) [Concomitant]
  23. GABAPENTIN [Concomitant]

REACTIONS (2)
  - CONDITION AGGRAVATED [None]
  - NEUROPATHY PERIPHERAL [None]
